FAERS Safety Report 6885319-7 (Version None)
Quarter: 2010Q3

REPORT INFORMATION
  Report Type: 
  Country: None (occurrence: None)
  Receive Date: 20100729
  Receipt Date: 20100729
  Transmission Date: 20110219
  Serious: Yes (Other)
  Sender: FDA-Public Use
  Company Number: None

PATIENT
  Age: 65 Year
  Sex: Female
  Weight: 64.4108 kg

DRUGS (1)
  1. LOVASTATIN [Suspect]
     Indication: BLOOD CHOLESTEROL
     Dosage: 1 PILL DAILY PO
     Route: 048
     Dates: start: 20100723, end: 20100724

REACTIONS (3)
  - BEDRIDDEN [None]
  - MOVEMENT DISORDER [None]
  - PAIN [None]
